FAERS Safety Report 5825204-2 (Version None)
Quarter: 2008Q3

REPORT INFORMATION
  Report Type: 
  Country: None (occurrence: None)
  Receive Date: 20080729
  Receipt Date: 20080721
  Transmission Date: 20090109
  Serious: Yes (Hospitalization)
  Sender: FDA-Public Use
  Company Number: PHHY2008BR10213

PATIENT
  Age: 55 Year
  Sex: Male
  Weight: 94 kg

DRUGS (4)
  1. DIOVAN [Suspect]
     Indication: HYPERTENSION
     Dosage: 160 MG 1 TABLET/DAY
     Route: 048
     Dates: end: 20080401
  2. DIOVAN [Suspect]
     Dosage: 160 MG, BID
     Dates: start: 20080325
  3. EXFORGE [Suspect]
     Dosage: 160/5 MG
     Dates: start: 20080401
  4. PREXIGEM [Suspect]
     Dosage: 400 MG, QD

REACTIONS (3)
  - ARRHYTHMIA [None]
  - OEDEMA PERIPHERAL [None]
  - PAIN [None]
